FAERS Safety Report 18661054 (Version 1)
Quarter: 2020Q4

REPORT INFORMATION
  Report Type: Spontaneous
  Country: IT (occurrence: IT)
  Receive Date: 20201224
  Receipt Date: 20201224
  Transmission Date: 20210114
  Serious: Yes (Other)
  Sender: FDA-Public Use
  Company Number: IT-SAMSUNG BIOEPIS-SB-2020-37630

PATIENT
  Age: 49 Year
  Sex: Female
  Weight: 85 kg

DRUGS (1)
  1. ADALIMUMAB [Suspect]
     Active Substance: ADALIMUMAB
     Indication: HIDRADENITIS
     Route: 058
     Dates: start: 20201211

REACTIONS (2)
  - Disease progression [Not Recovered/Not Resolved]
  - Drug ineffective [Not Recovered/Not Resolved]

NARRATIVE: CASE EVENT DATE: 20201211
